FAERS Safety Report 10763553 (Version 1)
Quarter: 2015Q1

REPORT INFORMATION
  Report Type: Spontaneous
  Country: US (occurrence: None)
  Receive Date: 20150129
  Receipt Date: 20150129
  Transmission Date: 20150721
  Serious: Yes (Hospitalization)
  Sender: FDA-Public Use
  Company Number: 2014014526

PATIENT
  Sex: Female

DRUGS (2)
  1. KEPPRA [Suspect]
     Active Substance: LEVETIRACETAM
     Indication: SEIZURE
  2. VIMPAT [Suspect]
     Active Substance: LACOSAMIDE
     Indication: SEIZURE
     Dosage: ONE 200 TABLET PM, 1/2 200 TAB AM, 1/2  200 TAB MID DAY

REACTIONS (5)
  - Hypoacusis [None]
  - Off label use [None]
  - Asthenia [None]
  - Overdose [None]
  - Drug ineffective [None]
